FAERS Safety Report 5307042-2 (Version None)
Quarter: 2007Q2

REPORT INFORMATION
  Report Type: 
  Country: None (occurrence: None)
  Receive Date: 20070425
  Receipt Date: 20070418
  Transmission Date: 20071010
  Serious: Yes (Hospitalization)
  Sender: FDA-Public Use
  Company Number: US-ROCHE-493520

PATIENT
  Age: 54 Year
  Sex: Female
  Weight: 77.1 kg

DRUGS (6)
  1. BONIVA [Suspect]
     Indication: OSTEOPOROSIS
     Route: 048
     Dates: start: 20070201, end: 20070201
  2. CLONAZEPAM [Concomitant]
     Indication: SOMNOLENCE
     Dosage: PATIENT TAKES AT BEDTIME
     Route: 048
     Dates: start: 20020615
  3. LEVBID [Concomitant]
     Dosage: PATIENT TKES 0.125 MG AT BEDTIME AND 0.375 IN THE MORNING
     Route: 048
     Dates: start: 20020615
  4. PROVIGIL [Concomitant]
     Dosage: PATIENT TAKES IN THE MORNING
     Route: 048
     Dates: start: 20020615
  5. ZOLOFT [Concomitant]
     Indication: DEPRESSION
     Route: 048
     Dates: start: 20060915
  6. CALCIUM CITRATE [Concomitant]
     Indication: OSTEOPOROSIS
     Dosage: PATIENT  HAS BEEN TAKING THE MEDICATION FOR MANY YEARS
     Route: 048

REACTIONS (6)
  - DIARRHOEA [None]
  - MULTIPLE SCLEROSIS [None]
  - MUSCLE SPASMS [None]
  - MUSCULAR WEAKNESS [None]
  - URINARY TRACT INFECTION [None]
  - VOMITING [None]
